FAERS Safety Report 9971541 (Version 1)
Quarter: 2014Q1

REPORT INFORMATION
  Report Type: Report from Study
  Country: US (occurrence: US)
  Receive Date: 20140306
  Receipt Date: 20140306
  Transmission Date: 20141002
  Serious: No
  Sender: FDA-Public Use
  Company Number: US-ABBVIE-13P-163-1151013-00

PATIENT
  Sex: Male

DRUGS (2)
  1. HUMIRA [Suspect]
     Indication: MATERNAL EXPOSURE TIMING UNSPECIFIED
     Route: 064
  2. HUMIRA [Suspect]
     Route: 063

REACTIONS (5)
  - Heart rate decreased [Recovered/Resolved]
  - Foetal exposure during pregnancy [Unknown]
  - Acoustic stimulation tests abnormal [Recovered/Resolved]
  - Exposure during breast feeding [Unknown]
  - Gastrooesophageal reflux disease [Not Recovered/Not Resolved]
